FAERS Safety Report 20740510 (Version 1)
Quarter: 2022Q2

REPORT INFORMATION
  Report Type: Spontaneous
  Country: US (occurrence: None)
  Receive Date: 20220422
  Receipt Date: 20220422
  Transmission Date: 20220721
  Serious: No
  Sender: FDA-Public Use
  Company Number: None

PATIENT

DRUGS (1)
  1. FASLODEX [Suspect]
     Active Substance: FULVESTRANT
     Indication: Product used for unknown indication

REACTIONS (6)
  - Injection site mass [None]
  - Injection site bruising [None]
  - Injection site pain [None]
  - Arthralgia [None]
  - Musculoskeletal pain [None]
  - Insomnia [None]
